FAERS Safety Report 7593445-2 (Version None)
Quarter: 2011Q2

REPORT INFORMATION
  Report Type: 
  Country: None (occurrence: None)
  Receive Date: 20110628
  Receipt Date: 20110622
  Transmission Date: 20111010
  Serious: Yes (Hospitalization, Other)
  Sender: FDA-Public Use
  Company Number: JHP201100222

PATIENT
  Age: 39 Year
  Sex: Female

DRUGS (2)
  1. ADALIMUMAB (ADALIMUMAB) [Concomitant]
  2. EPINEPHRINE [Suspect]
     Indication: WRONG DRUG ADMINISTERED
     Dosage: 1 MG, SINGLE, INTRAVENOUS
     Route: 042

REACTIONS (8)
  - ACCIDENTAL EXPOSURE [None]
  - ELECTROCARDIOGRAM T WAVE INVERSION [None]
  - PLEURAL EFFUSION [None]
  - PULMONARY OEDEMA [None]
  - DYSPNOEA [None]
  - STRESS CARDIOMYOPATHY [None]
  - ANGINA PECTORIS [None]
  - TACHYCARDIA [None]
